FAERS Safety Report 21638040 (Version 1)
Quarter: 2022Q4

REPORT INFORMATION
  Report Type: Report from Study
  Country: US (occurrence: US)
  Receive Date: 20221124
  Receipt Date: 20221124
  Transmission Date: 20230112
  Serious: No
  Sender: FDA-Public Use
  Company Number: US-ABBVIE-4164613

PATIENT
  Age: 62 Year
  Sex: Female

DRUGS (4)
  1. HUMIRA [Suspect]
     Active Substance: ADALIMUMAB
     Indication: Psoriatic arthropathy
     Dosage: STRENGTH 40 MG
     Route: 058
     Dates: start: 20180501
  2. Pfizer/BioNTech covid [Concomitant]
     Indication: COVID-19 immunisation
     Dosage: ONE IN ONCE?FIRST DOSE
     Route: 030
     Dates: start: 20210304, end: 20210304
  3. Pfizer/BioNTech covid [Concomitant]
     Indication: COVID-19 immunisation
     Dosage: ONE IN ONCE ?SECOND DOSE
     Route: 030
     Dates: start: 20210414, end: 20210414
  4. Pfizer/BioNTech covid [Concomitant]
     Indication: COVID-19 immunisation
     Dosage: ONE IN ONCE?BOOSTER DOSE
     Route: 030
     Dates: start: 20211011, end: 20211011

REACTIONS (1)
  - Eye disorder [Not Recovered/Not Resolved]

NARRATIVE: CASE EVENT DATE: 20221013
